FAERS Safety Report 4941128-7 (Version None)
Quarter: 2006Q1

REPORT INFORMATION
  Report Type: 
  Country: None (occurrence: None)
  Receive Date: 20060313
  Receipt Date: 19950807
  Transmission Date: 20060701
  Serious: Yes (Hospitalization)
  Sender: FDA-Public Use
  Company Number: US-GLAXOSMITHKLINE-B0186576A

PATIENT
  Age: 66 Year
  Sex: Female

DRUGS (3)
  1. CEFAZOLIN [Suspect]
     Indication: INFECTION PROPHYLAXIS
  2. DEXAMETHASONE [Concomitant]
     Indication: BACK PAIN
     Route: 042
  3. CEFTAZIDIME [Concomitant]
     Indication: INFECTION PROPHYLAXIS
     Route: 042

REACTIONS (7)
  - BACK PAIN [None]
  - CHILLS [None]
  - CONFUSIONAL STATE [None]
  - HEADACHE [None]
  - LETHARGY [None]
  - MENINGITIS ASEPTIC [None]
  - PYREXIA [None]
